FAERS Safety Report 9231201 (Version 2)
Quarter: 2013Q2

REPORT INFORMATION
  Report Type: Spontaneous
  Country: US (occurrence: US)
  Receive Date: 20130415
  Receipt Date: 20130507
  Transmission Date: 20140414
  Serious: Yes (Death, Other)
  Sender: FDA-Public Use
  Company Number: PHHY2013US036219

PATIENT
  Age: 63 Year
  Sex: Male

DRUGS (4)
  1. PACLITAXEL [Suspect]
     Indication: NON-SMALL CELL LUNG CANCER STAGE IIIB
     Dosage: 175 MG/M2, EVERY 3 WEEKS FOR 6 CYCLES
  2. CARBOPLATIN [Suspect]
     Indication: NON-SMALL CELL LUNG CANCER STAGE IIIB
  3. 5-FLUOROURACIL [Suspect]
     Indication: NON-SMALL CELL LUNG CANCER STAGE IIIB
  4. BEVACIZUMAB [Suspect]
     Indication: NON-SMALL CELL LUNG CANCER STAGE IIIB
     Dosage: 7.5 MG/KG, EVERY 3 WEEKS FOR 6 CYCLES

REACTIONS (8)
  - Metastases to central nervous system [Fatal]
  - Central nervous system lesion [Fatal]
  - Non-small cell lung cancer stage IIIB [Fatal]
  - Malignant neoplasm progression [Fatal]
  - Colorectal cancer [Unknown]
  - Large intestine polyp [Unknown]
  - Tumour invasion [Unknown]
  - Arteriospasm coronary [Unknown]
